FAERS Safety Report 5884648-3 (Version None)
Quarter: 2008Q3

REPORT INFORMATION
  Report Type: 
  Country: None (occurrence: None)
  Receive Date: 20080916
  Receipt Date: 20080910
  Transmission Date: 20090109
  Serious: Yes (Other)
  Sender: FDA-Public Use
  Company Number: US-BAYER-200812608BCC

PATIENT
  Age: 85 Year
  Sex: Female
  Weight: 55 kg

DRUGS (11)
  1. PHILLIPS' MILK OF MAGNESIA LIQUID ORIGINAL [Suspect]
     Indication: CONSTIPATION
     Dosage: TOTAL DAILY DOSE: 30 ML  UNIT DOSE: 30 ML
     Route: 048
     Dates: start: 20080623
  2. GLUCOPHAGE [Concomitant]
  3. TENORMIN [Concomitant]
  4. DYAZIDE [Concomitant]
  5. DIOVAN [Concomitant]
  6. NORVASC [Concomitant]
  7. NITROGLYCERIN [Concomitant]
  8. OSCAL CALCIUM [Concomitant]
  9. TYLENOL-500 [Concomitant]
  10. EQUATE 81 MG CHEWABLE ASPIRIN [Concomitant]
  11. ONE A DAY ESSENTIAL [Concomitant]

REACTIONS (5)
  - ABDOMINAL PAIN UPPER [None]
  - ASTHENIA [None]
  - FAECES DISCOLOURED [None]
  - HAEMORRHAGE [None]
  - HYPOPHAGIA [None]
